FAERS Safety Report 23675420 (Version 1)
Quarter: 2024Q1

REPORT INFORMATION
  Report Type: Spontaneous
  Country: US (occurrence: US)
  Receive Date: 20240327
  Receipt Date: 20240327
  Transmission Date: 20240410
  Serious: Yes (Hospitalization, Other)
  Sender: FDA-Public Use
  Company Number: US-ELI_LILLY_AND_COMPANY-US202403009591

PATIENT
  Age: 71 Year
  Sex: Female

DRUGS (8)
  1. PROZAC [Interacting]
     Active Substance: FLUOXETINE HYDROCHLORIDE
     Indication: Product used for unknown indication
     Dosage: UNK, UNKNOWN
     Route: 065
  2. INGREZZA [Interacting]
     Active Substance: VALBENAZINE
     Indication: Tardive dyskinesia
     Dosage: 40 MG, DAILY
     Route: 048
     Dates: start: 20180924, end: 20180930
  3. INGREZZA [Interacting]
     Active Substance: VALBENAZINE
     Dosage: 80 MG, DAILY
     Route: 048
     Dates: start: 20181001
  4. INGREZZA [Interacting]
     Active Substance: VALBENAZINE
     Dosage: 40 MG, BID
     Route: 048
     Dates: start: 2022
  5. INGREZZA [Interacting]
     Active Substance: VALBENAZINE
     Dosage: 40 MG, DAILY
     Route: 048
     Dates: start: 20230716
  6. PRAZOSIN [Concomitant]
     Active Substance: PRAZOSIN
     Indication: Product used for unknown indication
     Dosage: UNK, UNKNOWN
     Route: 065
  7. LYBALVI [Concomitant]
     Active Substance: OLANZAPINE\SAMIDORPHAN L-MALATE
     Indication: Product used for unknown indication
     Dosage: UNK, UNKNOWN
     Route: 065
  8. LORAZEPAM [Concomitant]
     Active Substance: LORAZEPAM
     Indication: Product used for unknown indication
     Dosage: UNK, UNKNOWN
     Route: 065

REACTIONS (2)
  - Blood sodium decreased [Recovered/Resolved with Sequelae]
  - Drug interaction [Unknown]

NARRATIVE: CASE EVENT DATE: 20231021
